FAERS Safety Report 22141805 (Version 1)
Quarter: 2023Q1

REPORT INFORMATION
  Report Type: Spontaneous
  Country: CA (occurrence: None)
  Receive Date: 20230326
  Receipt Date: 20230326
  Transmission Date: 20230418
  Serious: Yes (Disabling)
  Sender: FDA-Public Use
  Company Number: None

PATIENT
  Age: 33 Year
  Sex: Female
  Weight: 56.25 kg

DRUGS (1)
  1. PARAGARD T 380A [Suspect]
     Active Substance: COPPER
     Indication: Contraception
     Dates: start: 20210201, end: 20221018

REACTIONS (11)
  - Uterine pain [None]
  - Uterine inflammation [None]
  - Uterine spasm [None]
  - Feeling abnormal [None]
  - Fatigue [None]
  - Impaired work ability [None]
  - Dyspareunia [None]
  - Libido decreased [None]
  - Acne [None]
  - Weight increased [None]
  - Loss of personal independence in daily activities [None]

NARRATIVE: CASE EVENT DATE: 20220701
